FAERS Safety Report 19701625 (Version 1)
Quarter: 2021Q3

REPORT INFORMATION
  Report Type: Spontaneous
  Country: CH (occurrence: CH)
  Receive Date: 20210813
  Receipt Date: 20210813
  Transmission Date: 20211014
  Serious: Yes (Other)
  Sender: FDA-Public Use
  Company Number: CH-GILEAD-2021-0544112

PATIENT
  Sex: Female

DRUGS (2)
  1. ZYDELIG [Suspect]
     Active Substance: IDELALISIB
     Dosage: UNK
     Route: 065
  2. ZYDELIG [Suspect]
     Active Substance: IDELALISIB
     Indication: FOLLICULAR LYMPHOMA
     Dosage: UNK; DOSE REDUCTION
     Route: 065
     Dates: start: 20160719, end: 20161212

REACTIONS (3)
  - Diarrhoea [Unknown]
  - Lymphoma [Not Recovered/Not Resolved]
  - Hepatotoxicity [Unknown]
